FAERS Safety Report 15694460 (Version 2)
Quarter: 2019Q1

REPORT INFORMATION
  Report Type: Spontaneous
  Country: PT (occurrence: PT)
  Receive Date: 20181206
  Receipt Date: 20190108
  Transmission Date: 20190417
  Serious: Yes (Death)
  Sender: FDA-Public Use
  Company Number: PT-TEVA-2018-PT-982915

PATIENT
  Age: 81 Year
  Sex: Male

DRUGS (1)
  1. FLUCONAZOL [Suspect]
     Active Substance: FLUCONAZOLE
     Route: 065

REACTIONS (1)
  - Drug resistance [Fatal]
